FAERS Safety Report 11590365 (Version 2)
Quarter: 2015Q4

REPORT INFORMATION
  Report Type: Spontaneous
  Country: US (occurrence: US)
  Receive Date: 20151002
  Receipt Date: 20151204
  Transmission Date: 20160304
  Serious: Yes (Death, Other)
  Sender: FDA-Public Use
  Company Number: US-TEVA-597313USA

PATIENT
  Sex: Male
  Weight: 74.46 kg

DRUGS (2)
  1. FENTANYL TRANSDERMAL SYSTEM [Concomitant]
     Active Substance: FENTANYL
     Indication: PRODUCT USED FOR UNKNOWN INDICATION
  2. FENTORA [Suspect]
     Active Substance: FENTANYL CITRATE
     Indication: PANCREATIC CARCINOMA STAGE IV
     Route: 065

REACTIONS (1)
  - Pancreatic carcinoma stage IV [Fatal]
